FAERS Safety Report 5124362-5 (Version None)
Quarter: 2006Q4

REPORT INFORMATION
  Report Type: 
  Country: None (occurrence: None)
  Receive Date: 20060816
  Receipt Date: 20060710
  Transmission Date: 20070319
  Serious: No
  Sender: FDA-Public Use
  Company Number: US200607000618

PATIENT
  Age: 69 Year
  Sex: Male

DRUGS (2)
  1. CIALIS [Suspect]
     Dosage: 20 MG
     Dates: start: 20060702, end: 20060702
  2. BENICAR/USA.(OLMESARTAN MEDOXOMIL) [Concomitant]

REACTIONS (4)
  - LACRIMATION INCREASED [None]
  - PHOTOPSIA [None]
  - VISION BLURRED [None]
  - VITREOUS FLOATERS [None]
